FAERS Safety Report 15040998 (Version 1)
Quarter: 2018Q2

REPORT INFORMATION
  Report Type: Spontaneous
  Country: FR (occurrence: FR)
  Receive Date: 20180621
  Receipt Date: 20180621
  Transmission Date: 20180711
  Serious: Yes (Hospitalization)
  Sender: FDA-Public Use
  Company Number: FR-SUN PHARMACEUTICAL INDUSTRIES LTD-2018RR-176190

PATIENT
  Age: 69 Year
  Sex: Male
  Weight: 83 kg

DRUGS (18)
  1. FLUOROURACILE [Suspect]
     Active Substance: FLUOROURACIL
     Indication: ADENOCARCINOMA PANCREAS
     Dosage: 4600 MG, UNK
     Route: 042
     Dates: start: 20180507, end: 20180507
  2. FLUOROURACILE [Suspect]
     Active Substance: FLUOROURACIL
     Route: 042
     Dates: start: 20180507, end: 20180507
  3. NASONEX 50 MICROGRAMMES/DOSE, SUSPENSION POUR PULV?RISATION NASALE [Concomitant]
     Indication: CHRONIC OBSTRUCTIVE PULMONARY DISEASE
     Dosage: 1 DF, UNK
     Route: 045
  4. IRINOTECAN [Suspect]
     Active Substance: IRINOTECAN
     Dosage: 160 MG, UNK
     Route: 042
     Dates: start: 20180507, end: 20180507
  5. ZOPHREN 8 MG/4 ML, SOLUTION INJECTABLE EN SERINGUE PRE-REMPLIE [Concomitant]
     Indication: PROPHYLAXIS OF NAUSEA AND VOMITING
     Dosage: 1 DF, UNK
     Route: 042
  6. TAHOR [Concomitant]
     Active Substance: ATORVASTATIN CALCIUM
     Indication: DYSLIPIDAEMIA
     Dosage: 20 MG, UNK
     Route: 048
  7. TRANDATE 200 MG, COMPRIMEPELLICULE [Concomitant]
     Indication: HYPERTENSION
     Dosage: 600 MG, UNK
     Route: 048
  8. NOVOPULMON NOVOLIZER [Concomitant]
     Active Substance: BUDESONIDE
     Indication: CHRONIC OBSTRUCTIVE PULMONARY DISEASE
     Dosage: 1 DF, UNK
     Route: 055
  9. METFORMINE [Concomitant]
     Active Substance: METFORMIN HYDROCHLORIDE
     Indication: TYPE 2 DIABETES MELLITUS
     Dosage: 1500 MG, UNK
     Route: 048
  10. EMEND 125 MG, GELULE [Concomitant]
     Indication: PROPHYLAXIS OF NAUSEA AND VOMITING
     Dosage: 125 MG, UNK
     Route: 048
  11. ELVORINE [Concomitant]
     Active Substance: LEUCOVORIN CALCIUM
     Indication: POTENTIATING DRUG INTERACTION
     Dosage: 1 DF, UNK
     Route: 042
  12. SOLU-MEDROL [Concomitant]
     Active Substance: METHYLPREDNISOLONE SODIUM SUCCINATE
     Indication: PROPHYLAXIS OF NAUSEA AND VOMITING
     Dosage: 60 MG, UNK
     Route: 048
  13. OXALIPLATIN. [Suspect]
     Active Substance: OXALIPLATIN
     Dosage: 160 MG, UNK
     Route: 042
     Dates: start: 20180507, end: 20180507
  14. TAREG [Concomitant]
     Active Substance: VALSARTAN
     Indication: HYPERTENSION
     Dosage: 80 MG, UNK
     Route: 048
  15. IRINOTECAN [Suspect]
     Active Substance: IRINOTECAN
     Indication: ADENOCARCINOMA PANCREAS
     Dosage: 340 MG, UNK
     Route: 042
     Dates: start: 20180507, end: 20180507
  16. ASMELOR NOVOLIZER [Concomitant]
     Indication: CHRONIC OBSTRUCTIVE PULMONARY DISEASE
     Dosage: 2 DF, UNK
     Route: 055
  17. OXALIPLATIN. [Suspect]
     Active Substance: OXALIPLATIN
     Indication: ADENOCARCINOMA PANCREAS
     Dosage: 160 MG, UNK
     Route: 042
     Dates: start: 20180507, end: 20180507
  18. MONO TILDIEM LP 300 MG, GELULE A LIBERATION PROLONGEE [Concomitant]
     Indication: HYPERTENSION
     Dosage: 300 MG, UNK
     Route: 048

REACTIONS (1)
  - Ischaemic stroke [Not Recovered/Not Resolved]

NARRATIVE: CASE EVENT DATE: 20180508
